FAERS Safety Report 15954876 (Version 1)
Quarter: 2019Q1

REPORT INFORMATION
  Report Type: Other
  Country: GB (occurrence: GB)
  Receive Date: 20190213
  Receipt Date: 20190213
  Transmission Date: 20190417
  Serious: Yes (Other)
  Sender: FDA-Public Use
  Company Number: GB-STRIDES ARCOLAB LIMITED-2019SP001281

PATIENT
  Sex: Male

DRUGS (1)
  1. VANCOMYCIN [Suspect]
     Active Substance: VANCOMYCIN
     Indication: PRODUCT USED FOR UNKNOWN INDICATION
     Dosage: 6.1 ML (CONCENTRATION OF 500MG IN 20ML)
     Route: 043
     Dates: start: 20180924

REACTIONS (2)
  - Erythema [Unknown]
  - Accidental overdose [Unknown]

NARRATIVE: CASE EVENT DATE: 20180924
